FAERS Safety Report 23153005 (Version 2)
Quarter: 2023Q4

REPORT INFORMATION
  Report Type: Spontaneous
  Country: None (occurrence: US)
  Receive Date: 20231107
  Receipt Date: 20231108
  Transmission Date: 20240109
  Serious: Yes (Hospitalization)
  Sender: FDA-Public Use
  Company Number: US-The Proactiv LLC-2147869

PATIENT
  Age: 23 Year
  Sex: Male

DRUGS (8)
  1. PROACTIV SOLUTION RENEWING CLEANSER [Suspect]
     Active Substance: BENZOYL PEROXIDE
     Route: 061
  2. PROACTIV REVITALIZING TONER COMBINATION THERAPY ACNE TREATMENT [Suspect]
     Active Substance: SALICYLIC ACID
     Route: 061
  3. PROACTIV REPAIRING TREATMENT [Suspect]
     Active Substance: BENZOYL PEROXIDE
     Route: 061
  4. PROACTIV BLACKHEAD DISSOLVING [Suspect]
     Active Substance: SALICYLIC ACID
     Route: 061
  5. PROACTIV ACNE BODY WASH [Suspect]
     Active Substance: SALICYLIC ACID
     Route: 061
  6. COSMETICS [Suspect]
     Active Substance: COSMETICS
     Route: 061
  7. COSMETICS [Suspect]
     Active Substance: COSMETICS
     Route: 061
  8. PROACTIV PORE CLEANSING SYSTEM [Suspect]
     Active Substance: SALICYLIC ACID
     Route: 061

REACTIONS (8)
  - Rash [Unknown]
  - Skin infection [Unknown]
  - Swelling face [Unknown]
  - Pyrexia [Unknown]
  - Nausea [Unknown]
  - Chills [Unknown]
  - Fatigue [Unknown]
  - Skin irritation [Unknown]
